FAERS Safety Report 22249188 (Version 1)
Quarter: 2023Q2

REPORT INFORMATION
  Report Type: Spontaneous
  Country: US (occurrence: None)
  Receive Date: 20230421
  Receipt Date: 20230421
  Transmission Date: 20230722
  Serious: No
  Sender: FDA-Public Use
  Company Number: None

PATIENT
  Age: 74 Year
  Sex: Female
  Weight: 60.78 kg

DRUGS (5)
  1. IBRANCE [Suspect]
     Active Substance: PALBOCICLIB
     Indication: Breast cancer female
     Dosage: OTHER FREQUENCY : 21D ON 7D OFF;?
     Route: 048
  2. FASLODEX [Concomitant]
     Active Substance: FULVESTRANT
  3. NORCO [Concomitant]
     Active Substance: ACETAMINOPHEN\HYDROCODONE BITARTRATE
  4. LIDOCAINE [Concomitant]
     Active Substance: LIDOCAINE
  5. XGEVA [Concomitant]
     Active Substance: DENOSUMAB

REACTIONS (5)
  - Malaise [None]
  - Full blood count decreased [None]
  - Haemoglobin decreased [None]
  - Malignant neoplasm progression [None]
  - Breast cancer female [None]
